FAERS Safety Report 10245696 (Version 3)
Quarter: 2014Q3

REPORT INFORMATION
  Report Type: Spontaneous
  Country: JP (occurrence: JP)
  Receive Date: 20140619
  Receipt Date: 20140728
  Transmission Date: 20150326
  Serious: Yes (Other)
  Sender: FDA-Public Use
  Company Number: JP-ROCHE-1419996

PATIENT
  Age: 76 Year
  Sex: Female

DRUGS (4)
  1. MYONAL (JAPAN) [Concomitant]
     Active Substance: EPERISONE HYDROCHLORIDE
     Indication: SPINAL COMPRESSION FRACTURE
     Route: 048
     Dates: start: 20140513
  2. BONVIVA [Suspect]
     Active Substance: IBANDRONATE SODIUM
     Indication: OSTEOPOROSIS
     Dosage: LAST DOSE PRIOR TO SERIOUS ADVERSE EVENT: 06/JUN/2014
     Route: 042
     Dates: start: 20140606, end: 20140704
  3. REBAMIPIDE [Concomitant]
     Active Substance: REBAMIPIDE
     Indication: SPINAL COMPRESSION FRACTURE
     Route: 048
     Dates: start: 20140513
  4. LOXOPROFEN NA [Concomitant]
     Active Substance: LOXOPROFEN SODIUM
     Indication: SPINAL COMPRESSION FRACTURE
     Route: 048
     Dates: start: 20140513

REACTIONS (2)
  - VIIth nerve paralysis [Recovering/Resolving]
  - Feeling abnormal [Unknown]

NARRATIVE: CASE EVENT DATE: 20140606
